FAERS Safety Report 18372204 (Version 4)
Quarter: 2020Q4

REPORT INFORMATION
  Report Type: Spontaneous
  Country: US (occurrence: US)
  Receive Date: 20201012
  Receipt Date: 20201112
  Transmission Date: 20210114
  Serious: No
  Sender: FDA-Public Use
  Company Number: US-PFIZER INC-2020391402

PATIENT
  Age: 56 Year
  Sex: Female

DRUGS (1)
  1. PREGABALIN. [Suspect]
     Active Substance: PREGABALIN
     Dosage: UNK
     Dates: start: 200609

REACTIONS (5)
  - Drug ineffective [Unknown]
  - Intentional product use issue [Unknown]
  - Fatigue [Unknown]
  - Feeling abnormal [Unknown]
  - Paraesthesia [Unknown]
